FAERS Safety Report 8237675-5 (Version None)
Quarter: 2012Q1

REPORT INFORMATION
  Report Type: 
  Country: None (occurrence: None)
  Receive Date: 20120323
  Receipt Date: 20120312
  Transmission Date: 20120608
  Serious: Yes (Other)
  Sender: FDA-Public Use
  Company Number: 2012-020559

PATIENT
  Age: 79 Year
  Sex: Male
  Weight: 59.9 kg

DRUGS (3)
  1. ASPIRIN [Suspect]
     Indication: ILL-DEFINED DISORDER
     Dosage: 81 MG, HS
  2. METOPROLOL TARTRATE [Concomitant]
  3. XARELTO [Suspect]
     Indication: ATRIAL FIBRILLATION
     Dosage: 10 MG, HS, ORAL
     Route: 048
     Dates: start: 20111228, end: 20120222

REACTIONS (5)
  - IRON DEFICIENCY ANAEMIA [None]
  - PROTHROMBIN TIME PROLONGED [None]
  - GASTROINTESTINAL HAEMORRHAGE [None]
  - INTERNATIONAL NORMALISED RATIO INCREASED [None]
  - EPISTAXIS [None]
